FAERS Safety Report 9159530 (Version 1)
Quarter: 2013Q1

REPORT INFORMATION
  Report Type: Spontaneous
  Country: US (occurrence: None)
  Receive Date: 20130312
  Receipt Date: 20130312
  Transmission Date: 20140127
  Serious: No
  Sender: FDA-Public Use
  Company Number: None

PATIENT
  Age: 72 Year
  Sex: Female
  Weight: 58.97 kg

DRUGS (1)
  1. ALEVE [Suspect]
     Indication: BACK PAIN
     Dates: start: 20130213, end: 20130223

REACTIONS (1)
  - Tinnitus [None]
